FAERS Safety Report 8965579 (Version 1)
Quarter: 2012Q4

REPORT INFORMATION
  Report Type: Spontaneous
  Country: US (occurrence: None)
  Receive Date: 20121212
  Receipt Date: 20121212
  Transmission Date: 20130627
  Serious: Yes (Other)
  Sender: FDA-Public Use
  Company Number: None

PATIENT
  Age: 30 Year
  Sex: Female
  Weight: 72.58 kg

DRUGS (1)
  1. MIRENA IUD [Suspect]
     Indication: CONTRACEPTION
     Dates: start: 20111001, end: 20121204

REACTIONS (9)
  - Headache [None]
  - Amnesia [None]
  - Fatigue [None]
  - Pain [None]
  - Urinary tract infection [None]
  - Irritability [None]
  - Depression [None]
  - Feeling abnormal [None]
  - Ill-defined disorder [None]
